FAERS Safety Report 7702279-7 (Version None)
Quarter: 2011Q3

REPORT INFORMATION
  Report Type: 
  Country: None (occurrence: None)
  Receive Date: 20110822
  Receipt Date: 20110809
  Transmission Date: 20111222
  Serious: Yes (Other)
  Sender: FDA-Public Use
  Company Number: JP-CELGENEUS-087-21880-10121745

PATIENT
  Sex: Male
  Weight: 57 kg

DRUGS (35)
  1. DEXAMETHASONE [Suspect]
     Dosage: 20 MILLIGRAM
     Route: 048
     Dates: start: 20101202, end: 20101222
  2. TRICHLORMETHIAZIDE [Concomitant]
     Dosage: 1 MILLIGRAM
     Route: 048
     Dates: start: 20110106
  3. BASEN [Concomitant]
     Dosage: .9 MILLIGRAM
     Route: 048
     Dates: start: 20110106
  4. SENNOSIDE [Concomitant]
     Dosage: 24 MILLIGRAM
     Route: 048
     Dates: start: 20101202
  5. REVLIMID [Suspect]
     Dosage: 5 MILLIGRAM
     Route: 048
     Dates: start: 20110106, end: 20110201
  6. ARGAMATE [Concomitant]
     Dosage: 50 GRAM
     Route: 048
     Dates: start: 20110106
  7. ACETAMINOPHEN [Concomitant]
     Dosage: 800 MILLIGRAM
     Route: 048
     Dates: start: 20101202
  8. ALLOPURINOL [Concomitant]
     Dosage: 100 MILLIGRAM
     Route: 048
     Dates: start: 20070419
  9. ALLOPURINOL [Concomitant]
     Dosage: 100 MILLIGRAM
     Route: 048
     Dates: start: 20101202
  10. AMLODIPINE [Concomitant]
     Dosage: 5 MILLIGRAM
     Route: 048
     Dates: start: 20110106
  11. PANTOSIN [Concomitant]
     Dosage: 180 MILLIGRAM
     Route: 048
     Dates: start: 20101202
  12. REVLIMID [Suspect]
     Dosage: 5 MILLIGRAM
     Route: 048
     Dates: start: 20101028, end: 20101117
  13. REVLIMID [Suspect]
     Dosage: 5 MILLIGRAM
     Route: 048
     Dates: start: 20110224, end: 20110309
  14. SENNOSIDE [Concomitant]
     Dosage: 24 MILLIGRAM
     Route: 048
     Dates: start: 20110106
  15. ASPIRIN [Concomitant]
     Indication: PROPHYLAXIS
     Dosage: 100 MILLIGRAM
     Route: 048
     Dates: start: 20100930
  16. ASPIRIN [Concomitant]
     Dosage: 100 MILLIGRAM
     Route: 048
     Dates: start: 20101202
  17. BASEN [Concomitant]
     Dosage: .9 MILLIGRAM
     Route: 048
     Dates: start: 20101202
  18. REVLIMID [Suspect]
     Indication: MULTIPLE MYELOMA
     Dosage: 5 MILLIGRAM
     Route: 048
     Dates: start: 20100930, end: 20101017
  19. DEXAMETHASONE [Suspect]
     Indication: MULTIPLE MYELOMA
     Dosage: 40 MILLIGRAM
     Route: 048
     Dates: start: 20100930, end: 20101117
  20. SENNOSIDE [Concomitant]
     Dosage: 24 MILLIGRAM
     Route: 048
     Dates: start: 20100108
  21. PANTOSIN [Concomitant]
     Dosage: 180 MILLIGRAM
     Route: 048
     Dates: start: 20110106
  22. ASPIRIN [Concomitant]
     Dosage: 100 MILLIGRAM
     Route: 048
     Dates: start: 20110106, end: 20110413
  23. REVLIMID [Suspect]
     Dosage: 5 MILLIGRAM
     Route: 048
     Dates: start: 20101202, end: 20101222
  24. ALLOPURINOL [Concomitant]
     Dosage: 100 MILLIGRAM
     Route: 048
     Dates: start: 20110106
  25. AMLODIPINE [Concomitant]
     Dosage: 5 MILLIGRAM
     Route: 048
     Dates: start: 20101202
  26. TRICHLORMETHIAZIDE [Concomitant]
     Indication: HYPERTENSION
     Dosage: 1 MILLIGRAM
     Route: 048
     Dates: start: 20100825
  27. ARGAMATE [Concomitant]
     Indication: RENAL FAILURE CHRONIC
     Dosage: 75 GRAM
     Route: 048
     Dates: start: 20091126
  28. ACETAMINOPHEN [Concomitant]
     Dosage: 800 MILLIGRAM
     Route: 048
     Dates: start: 20100122
  29. ACETAMINOPHEN [Concomitant]
     Dosage: 800 MILLIGRAM
     Route: 048
     Dates: start: 20110106
  30. PANTOSIN [Concomitant]
     Dosage: 180 MILLIGRAM
     Route: 048
     Dates: start: 20100514
  31. DEXAMETHASONE [Suspect]
     Dosage: 20 MILLIGRAM
     Route: 048
     Dates: start: 20110106, end: 20110201
  32. AMLODIPINE [Concomitant]
     Indication: HYPERTENSION
     Dosage: 5 MILLIGRAM
     Route: 048
  33. TRICHLORMETHIAZIDE [Concomitant]
     Dosage: 1 MILLIGRAM
     Route: 048
     Dates: start: 20101202
  34. BASEN [Concomitant]
     Indication: DIABETES MELLITUS
     Dosage: .9 MILLIGRAM
     Route: 048
  35. ARGAMATE [Concomitant]
     Dosage: 75 GRAM
     Route: 048
     Dates: start: 20101202

REACTIONS (5)
  - DELIRIUM [None]
  - HEPATIC FUNCTION ABNORMAL [None]
  - THROMBOCYTOPENIA [None]
  - ANAEMIA [None]
  - NEUTROPENIA [None]
